FAERS Safety Report 5755986-X (Version None)
Quarter: 2008Q2

REPORT INFORMATION
  Report Type: 
  Country: None (occurrence: None)
  Receive Date: 20080602
  Receipt Date: 20080402
  Transmission Date: 20081010
  Serious: No
  Sender: FDA-Public Use
  Company Number: US-BAYER-200811378BCC

PATIENT
  Age: 87 Year
  Sex: Female
  Weight: 64 kg

DRUGS (6)
  1. ALEVE (CAPLET) [Suspect]
     Indication: ANALGESIA
     Dosage: TOTAL DAILY DOSE: 440 MG  UNIT DOSE: 220 MG
     Route: 048
     Dates: start: 20080331, end: 20080401
  2. CITRACAL [Suspect]
     Indication: VITAMIN SUPPLEMENTATION
     Dosage: TOTAL DAILY DOSE: 1 DF  UNIT DOSE: 1 DF
     Route: 048
  3. ONE A DAY WOMAN'S VITAMIN [Suspect]
     Indication: VITAMIN SUPPLEMENTATION
     Dosage: TOTAL DAILY DOSE: 1 DF  UNIT DOSE: 1 DF
     Route: 048
  4. LEVOTHYROXINE SODIUM [Concomitant]
  5. DETROL LA [Concomitant]
  6. ASCORBIC ACID [Concomitant]

REACTIONS (1)
  - INSOMNIA [None]
